FAERS Safety Report 20731264 (Version 1)
Quarter: 2022Q2

REPORT INFORMATION
  Report Type: Spontaneous
  Country: US (occurrence: None)
  Receive Date: 20220420
  Receipt Date: 20220420
  Transmission Date: 20220720
  Serious: No
  Sender: FDA-Public Use
  Company Number: None

PATIENT
  Age: 34 Year
  Weight: 92.99 kg

DRUGS (2)
  1. BEBTELOVIMAB [Suspect]
     Active Substance: BEBTELOVIMAB
     Indication: COVID-19
  2. BEBTELOVIMAB [Concomitant]
     Active Substance: BEBTELOVIMAB
     Dates: start: 20220419, end: 20220419

REACTIONS (3)
  - Dizziness [None]
  - Loss of consciousness [None]
  - Chest discomfort [None]

NARRATIVE: CASE EVENT DATE: 20220419
